FAERS Safety Report 20177277 (Version 2)
Quarter: 2022Q2

REPORT INFORMATION
  Report Type: Report from Study
  Country: US (occurrence: US)
  Receive Date: 20211213
  Receipt Date: 20220512
  Transmission Date: 20220720
  Serious: No
  Sender: FDA-Public Use
  Company Number: US-NOVARTISTESTPH-NVSC2021US283261

PATIENT
  Sex: Female
  Weight: 63.492 kg

DRUGS (5)
  1. TREPROSTINIL [Suspect]
     Active Substance: TREPROSTINIL
     Indication: Pulmonary arterial hypertension
     Dosage: 48 NANOGRAM PER KILOGRAM, CONT (48 NG/KG/MIN)
     Route: 058
     Dates: start: 20211027
  2. TREPROSTINIL [Suspect]
     Active Substance: TREPROSTINIL
     Dosage: 48 NANOGRAM PER KILOGRAM, CONT (48 NG/KG/MIN)
     Route: 058
     Dates: start: 20211027
  3. AMBRISENTAN [Concomitant]
     Active Substance: AMBRISENTAN
     Indication: Product used for unknown indication
     Dosage: UNK
     Route: 065
  4. ADCIRCA [Concomitant]
     Active Substance: TADALAFIL
     Indication: Pulmonary arterial hypertension
     Dosage: UNK
     Route: 065
  5. DILTIAZEM [Concomitant]
     Active Substance: DILTIAZEM
     Indication: Product used for unknown indication
     Dosage: UNK
     Route: 065

REACTIONS (5)
  - Dry eye [Unknown]
  - Needle issue [Unknown]
  - Weight decreased [Unknown]
  - Excessive skin [Unknown]
  - Catheter site haemorrhage [Unknown]
